FAERS Safety Report 16704367 (Version 5)
Quarter: 2019Q4

REPORT INFORMATION
  Report Type: Report from Study
  Country: CN (occurrence: CN)
  Receive Date: 20190814
  Receipt Date: 20191202
  Transmission Date: 20200122
  Serious: Yes (Hospitalization)
  Sender: FDA-Public Use
  Company Number: PHHY2018CN180362

PATIENT
  Age: 58 Year
  Sex: Male
  Weight: 54 kg

DRUGS (14)
  1. BICYCLOL [Concomitant]
     Active Substance: BICYCLOL
     Indication: PROPHYLAXIS
  2. MYFORTIC [Suspect]
     Active Substance: MYCOPHENOLATE SODIUM
     Dosage: 1080 UNK
     Route: 048
     Dates: start: 20181129, end: 20181225
  3. ESOMEPRAZOLE SODIUM. [Concomitant]
     Active Substance: ESOMEPRAZOLE SODIUM
     Indication: PROPHYLAXIS
     Dosage: 40 MG, QD
     Route: 042
     Dates: start: 20180825, end: 20180826
  4. CEFOPERAZONE SODIUM AND SULBACTAM SODIUM [Concomitant]
     Active Substance: CEFOPERAZONE SODIUM\SULBACTAM SODIUM
     Indication: PROPHYLAXIS
     Dosage: 2 G, TID
     Route: 042
     Dates: start: 20180825, end: 20180905
  5. MYFORTIC [Suspect]
     Active Substance: MYCOPHENOLATE SODIUM
     Indication: PROPHYLAXIS
     Dosage: 1440 MG/DL, QD
     Route: 048
     Dates: start: 20180825, end: 20181128
  6. SILIBININ [Concomitant]
     Active Substance: SILIBININ
     Indication: PROPHYLAXIS
  7. SUCRALFATE. [Concomitant]
     Active Substance: SUCRALFATE
     Indication: PROPHYLAXIS
     Dosage: 20 G, TID
     Route: 048
     Dates: start: 20180825, end: 20180905
  8. HUMAN ALBUMIN [Concomitant]
     Active Substance: ALBUMIN HUMAN
     Indication: BLOOD OSMOLARITY DECREASED
     Dosage: 10 G, BID
     Route: 042
     Dates: start: 20180825, end: 20180827
  9. MYFORTIC [Suspect]
     Active Substance: MYCOPHENOLATE SODIUM
     Dosage: 1080 MG, UNK
     Route: 048
     Dates: start: 20180825, end: 20181206
  10. BASILIXIMAB [Suspect]
     Active Substance: BASILIXIMAB
     Dosage: 20 MG, QD
     Route: 065
     Dates: start: 20180829, end: 20180829
  11. BASILIXIMAB [Suspect]
     Active Substance: BASILIXIMAB
     Indication: PRODUCT USED FOR UNKNOWN INDICATION
     Dosage: 20 MG, QD
     Route: 065
     Dates: start: 20180825, end: 20180825
  12. SILIBININ [Concomitant]
     Active Substance: SILIBININ
     Indication: LIVER DISORDER
     Dosage: 105 MG, TID
     Route: 048
     Dates: start: 20180921, end: 20190226
  13. BICYCLOL [Concomitant]
     Active Substance: BICYCLOL
     Indication: LIVER DISORDER
     Dosage: 50 MG, TID
     Route: 048
     Dates: start: 20180921, end: 20181226
  14. ULINASTATIN [Concomitant]
     Active Substance: ULINASTATIN
     Indication: INFLAMMATION
     Dosage: 50 G, BID
     Route: 042
     Dates: start: 20180825, end: 20180826

REACTIONS (4)
  - Drug-induced liver injury [Recovered/Resolved]
  - Hepatic function abnormal [Recovering/Resolving]
  - Hypercholesterolaemia [Unknown]
  - Abdominal distension [Recovered/Resolved]

NARRATIVE: CASE EVENT DATE: 20180825
